FAERS Safety Report 5134562-6 (Version None)
Quarter: 2006Q4

REPORT INFORMATION
  Report Type: 
  Country: None (occurrence: None)
  Receive Date: 20061019
  Receipt Date: 20061005
  Transmission Date: 20070319
  Serious: No
  Sender: FDA-Public Use
  Company Number: 0XER20060074

PATIENT
  Age: 61 Year
  Sex: Female
  Weight: 58.9676 kg

DRUGS (5)
  1. OXYCODONE HCL [Suspect]
     Indication: PAIN
     Dosage: 40 MG TID PO
     Route: 048
     Dates: start: 20060306
  2. CORGARD [Concomitant]
  3. NEURONTIN [Concomitant]
  4. OSCAL-D [Concomitant]
  5. PRENATAL VITAMINS [Concomitant]

REACTIONS (5)
  - FALL [None]
  - HYPOXIA [None]
  - LOSS OF CONSCIOUSNESS [None]
  - MENISCUS LESION [None]
  - SOFT TISSUE DISORDER [None]
